FAERS Safety Report 19815511 (Version 3)
Quarter: 2023Q2

REPORT INFORMATION
  Report Type: Spontaneous
  Country: US (occurrence: US)
  Receive Date: 20210910
  Receipt Date: 20230605
  Transmission Date: 20230722
  Serious: Yes (Other)
  Sender: FDA-Public Use
  Company Number: US-VERTEX PHARMACEUTICALS-2021-013713

PATIENT
  Age: 13 Year
  Sex: Female
  Weight: 42 kg

DRUGS (16)
  1. TRIKAFTA [Suspect]
     Active Substance: ELEXACAFTOR\IVACAFTOR\TEZACAFTOR
     Indication: Cystic fibrosis
     Dosage: 2 ORANGE TABS AM + 1 BLUE TAB PM
     Route: 048
     Dates: start: 20200214
  2. DIAMOX SEQUELS [Suspect]
     Active Substance: ACETAZOLAMIDE
     Indication: Intracranial pressure increased
     Dosage: 250 MG, 1 TAB TWICE DAILY
     Route: 048
     Dates: start: 20210908
  3. DIAMOX SEQUELS [Suspect]
     Active Substance: ACETAZOLAMIDE
     Indication: Papilloedema
  4. PROAIR HFA [Concomitant]
     Active Substance: ALBUTEROL SULFATE
     Indication: Cough
     Dosage: 2 PUFFS 2 TIMES DAILY
     Dates: start: 20210716
  5. PROAIR HFA [Concomitant]
     Active Substance: ALBUTEROL SULFATE
     Indication: Wheezing
  6. SYMBICORT [Concomitant]
     Active Substance: BUDESONIDE\FORMOTEROL FUMARATE DIHYDRATE
     Dosage: 2 PUFFS TWICE A DAY
     Dates: start: 20210430
  7. PERIACTIN [Concomitant]
     Active Substance: CYPROHEPTADINE HYDROCHLORIDE
     Dosage: 1 TAB, BID
     Route: 048
     Dates: start: 20210720
  8. PULMOZYME [Concomitant]
     Active Substance: DORNASE ALFA
     Dosage: 2.5 ML DAILY
     Dates: start: 20210812
  9. ZENPEP [Concomitant]
     Active Substance: PANCRELIPASE AMYLASE\PANCRELIPASE LIPASE\PANCRELIPASE PROTEASE
     Dosage: 20,000-63,000- 84,000 UNIT, 3 CAPS 5 TIMES DAILY.
     Route: 048
     Dates: start: 20201210
  10. MELATONIN [Concomitant]
     Active Substance: MELATONIN
     Dosage: 1 TAB PM
     Route: 048
     Dates: start: 20200818
  11. SODIUM CHLORIDE [Concomitant]
     Active Substance: SODIUM CHLORIDE
     Dosage: 4ML, QD
     Dates: start: 20201110
  12. VITAMIN D [Concomitant]
     Active Substance: VITAMIN D NOS
     Dosage: 3000-800 UNIT-MCG, 1 CAP, BID
     Route: 048
  13. ALBUTEROL [Concomitant]
     Active Substance: ALBUTEROL
  14. CYPROHEPTADINE [Concomitant]
     Active Substance: CYPROHEPTADINE
  15. SODIUM CHLORIDE [Concomitant]
     Active Substance: SODIUM CHLORIDE
  16. VITAMIN A [Concomitant]
     Active Substance: VITAMIN A

REACTIONS (5)
  - Decreased appetite [Recovered/Resolved]
  - Nausea [Recovered/Resolved]
  - Rales [Recovered/Resolved]
  - Pulmonary pain [Recovered/Resolved]
  - Intracranial pressure increased [Recovered/Resolved]

NARRATIVE: CASE EVENT DATE: 20210101
